FAERS Safety Report 13758918 (Version 4)
Quarter: 2017Q4

REPORT INFORMATION
  Report Type: Report from Study
  Country: None (occurrence: US)
  Receive Date: 20170717
  Receipt Date: 20171020
  Transmission Date: 20180320
  Serious: Yes (Hospitalization, Other)
  Sender: FDA-Public Use
  Company Number: US-ABBVIE-17K-163-1957906-00

PATIENT
  Age: 65 Year
  Sex: Male
  Weight: 104.42 kg

DRUGS (4)
  1. XARELTO [Concomitant]
     Active Substance: RIVAROXABAN
     Indication: PULMONARY EMBOLISM
  2. ATORVASTATIN [Concomitant]
     Active Substance: ATORVASTATIN
     Indication: BLOOD CHOLESTEROL INCREASED
  3. HUMIRA [Suspect]
     Active Substance: ADALIMUMAB
     Indication: ANKYLOSING SPONDYLITIS
     Route: 058
  4. HUMIRA [Suspect]
     Active Substance: ADALIMUMAB
     Indication: RHEUMATOID ARTHRITIS
     Route: 058

REACTIONS (15)
  - Intestinal polyp [Recovered/Resolved]
  - Haemorrhoids [Recovered/Resolved]
  - Fall [Recovered/Resolved]
  - Arthritis [Unknown]
  - Nasopharyngitis [Unknown]
  - Urinary tract infection [Recovered/Resolved]
  - Anaesthetic complication [Recovered/Resolved]
  - Spinal fracture [Not Recovered/Not Resolved]
  - Fungal infection [Recovered/Resolved]
  - Fungal infection [Not Recovered/Not Resolved]
  - Neck pain [Not Recovered/Not Resolved]
  - Coagulopathy [Unknown]
  - Device difficult to use [Not Recovered/Not Resolved]
  - Tinea cruris [Not Recovered/Not Resolved]
  - Fall [Recovered/Resolved]

NARRATIVE: CASE EVENT DATE: 2016
